FAERS Safety Report 24532785 (Version 1)
Quarter: 2024Q4

REPORT INFORMATION
  Report Type: Spontaneous
  Country: PT (occurrence: PT)
  Receive Date: 20241022
  Receipt Date: 20241022
  Transmission Date: 20250114
  Serious: Yes (Other)
  Sender: CELLTRION
  Company Number: PL-AMGEN-POLSP2024063005

PATIENT

DRUGS (1)
  1. ADALIMUMAB [Suspect]
     Active Substance: ADALIMUMAB
     Indication: Crohn^s disease
     Dosage: ADDITIONAL INFORMATION ON DRUG (FREE TEXT): DOSAGE1: UNIT=NOT AVAILABLE
     Route: 058

REACTIONS (4)
  - Polyarthritis [Recovered/Resolved]
  - Lupus-like syndrome [Recovered/Resolved]
  - Cutaneous vasculitis [Recovered/Resolved]
  - Lupus-like syndrome [Recovered/Resolved]
